FAERS Safety Report 10719550 (Version 1)
Quarter: 2015Q1

REPORT INFORMATION
  Report Type: Spontaneous
  Country: US (occurrence: US)
  Receive Date: 20150119
  Receipt Date: 20150119
  Transmission Date: 20150721
  Serious: No
  Sender: FDA-Public Use
  Company Number: US-UNITED THERAPEUTICS-UNT-2014-004436

PATIENT
  Age: 80 Year
  Sex: Male
  Weight: 89.98 kg

DRUGS (2)
  1. TYVASO [Suspect]
     Active Substance: TREPROSTINIL
     Indication: PULMONARY ARTERIAL HYPERTENSION
     Dosage: 18-54 MICROGRAMS, QID
     Dates: start: 20140623
  2. SILDENAFIL CITRATE. [Concomitant]
     Active Substance: SILDENAFIL CITRATE
     Indication: PRODUCT USED FOR UNKNOWN INDICATION

REACTIONS (7)
  - Dyspnoea [Unknown]
  - Cough [Unknown]
  - Nausea [Unknown]
  - Malaise [Unknown]
  - Dizziness [Recovered/Resolved]
  - Device issue [Unknown]
  - Headache [Unknown]

NARRATIVE: CASE EVENT DATE: 2014
